FAERS Safety Report 10225040 (Version 3)
Quarter: 2014Q2

REPORT INFORMATION
  Report Type: Spontaneous
  Country: JP (occurrence: JP)
  Receive Date: 20140609
  Receipt Date: 20140623
  Transmission Date: 20141212
  Serious: No
  Sender: FDA-Public Use
  Company Number: PHHY2014JP069845

PATIENT
  Age: 8 Year
  Sex: Female

DRUGS (5)
  1. NEORAL [Suspect]
     Indication: NEPHROTIC SYNDROME
     Dosage: 3 MG/KG PER DAY
     Route: 048
  2. PREDONINE [Suspect]
     Indication: NEPHROTIC SYNDROME
     Dosage: 2 MG/KG PER DAY
     Route: 042
  3. PREDONINE [Suspect]
     Indication: NEPHROTIC SYNDROME
  4. CORTICOSTEROIDS [Suspect]
  5. RITUXIMAB [Suspect]

REACTIONS (1)
  - Drug ineffective [Unknown]
